FAERS Safety Report 6914809-3 (Version None)
Quarter: 2010Q3

REPORT INFORMATION
  Report Type: 
  Country: None (occurrence: None)
  Receive Date: 20100809
  Receipt Date: 20100730
  Transmission Date: 20110219
  Serious: Yes (Other)
  Sender: FDA-Public Use
  Company Number: US-ASTRAZENECA-2010SE35835

PATIENT
  Sex: Male

DRUGS (18)
  1. ATENOLOL [Suspect]
     Route: 065
  2. SEROQUEL [Interacting]
     Route: 048
  3. ATROVENT [Interacting]
  4. ABILIFY [Interacting]
  5. CARVEDILOL [Interacting]
  6. COZAAR [Interacting]
     Route: 048
  7. DIGOXIN [Interacting]
  8. DIPHENHYDRAMINE [Interacting]
  9. EPOGEN [Interacting]
  10. FOLIC ACID [Interacting]
  11. FERROUS SUL TAB [Interacting]
  12. GABAPENTIN [Interacting]
  13. LOPERAMIDE [Interacting]
  14. LEXAPRO [Interacting]
     Route: 048
  15. NORVIR [Interacting]
  16. FELDENE [Interacting]
  17. TRAMADOL HYDROCHLORIDE [Interacting]
  18. ZYRTEC [Interacting]
     Route: 048

REACTIONS (2)
  - DRUG INTERACTION [None]
  - RASH [None]
